FAERS Safety Report 18124026 (Version 1)
Quarter: 2020Q3

REPORT INFORMATION
  Report Type: Report from Study
  Country: BR (occurrence: BR)
  Receive Date: 20200807
  Receipt Date: 20200807
  Transmission Date: 20201103
  Serious: Yes (Hospitalization, Other)
  Sender: FDA-Public Use
  Company Number: NVSC2020BR218640

PATIENT
  Age: 62 Year
  Sex: Male

DRUGS (2)
  1. ENTRESTO [Suspect]
     Active Substance: SACUBITRIL\VALSARTAN
     Dosage: 1 DF (49/51 MG SACUBITRIL/VALSARTAN)
     Route: 065
  2. ENTRESTO [Suspect]
     Active Substance: SACUBITRIL\VALSARTAN
     Indication: PRODUCT USED FOR UNKNOWN INDICATION
     Dosage: 1 DF (24/26 MG SACUBITRIL/VALSARTAN)
     Route: 065
     Dates: start: 202003, end: 202007

REACTIONS (6)
  - Infarction [Recovering/Resolving]
  - Malaise [Unknown]
  - Anxiety [Unknown]
  - Injury [Unknown]
  - Speech disorder [Unknown]
  - Asthenia [Unknown]

NARRATIVE: CASE EVENT DATE: 202005
